FAERS Safety Report 6803018-4 (Version None)
Quarter: 2010Q2

REPORT INFORMATION
  Report Type: 
  Country: None (occurrence: None)
  Receive Date: 20100628
  Receipt Date: 20100614
  Transmission Date: 20101027
  Serious: Yes (Life-Threatening, Other)
  Sender: FDA-Public Use
  Company Number: US-PFIZER INC-2010074507

PATIENT
  Sex: Female

DRUGS (3)
  1. DILANTIN-125 [Suspect]
     Indication: CONVULSION
     Dosage: 4ML IN MORNING, 8ML AT NIGHT
     Route: 048
  2. DILANTIN-125 [Suspect]
     Dosage: 4 ML, 2X/DAY, MORNING AND NIGHT
     Route: 048
  3. DILANTIN-125 [Suspect]
     Dosage: 3 ML, 2X/DAY, MORNING AND NIGHT
     Route: 048
     Dates: start: 20100101

REACTIONS (11)
  - ANTICONVULSANT DRUG LEVEL INCREASED [None]
  - CONVULSION [None]
  - DECREASED APPETITE [None]
  - DRUG TOXICITY [None]
  - DYSPHAGIA [None]
  - LETHARGY [None]
  - MALAISE [None]
  - OEDEMA PERIPHERAL [None]
  - OVERDOSE [None]
  - SOMNOLENCE [None]
  - TREMOR [None]
